FAERS Safety Report 6341915-7 (Version None)
Quarter: 2009Q3

REPORT INFORMATION
  Report Type: 
  Country: None (occurrence: None)
  Receive Date: 20090904
  Receipt Date: 20090831
  Transmission Date: 20100115
  Serious: No
  Sender: FDA-Public Use
  Company Number: PHHO2008IL07965

PATIENT
  Sex: Female
  Weight: 74 kg

DRUGS (5)
  1. LDT600 LDT+TAB [Suspect]
     Indication: HEPATITIS B
     Dosage: 600 MG,
     Route: 048
     Dates: start: 20060716, end: 20080625
  2. TRITACE [Concomitant]
     Indication: HYPERTENSION
  3. PROSCAR [Concomitant]
     Indication: ATRIAL FIBRILLATION
     Dosage: UNK
  4. COZAAR [Concomitant]
     Indication: HYPERTENSION
     Dosage: UNK
  5. NORMALOL [Concomitant]
     Indication: HYPERTENSION
     Dosage: UNK

REACTIONS (2)
  - HYPOAESTHESIA [None]
  - POLYNEUROPATHY [None]
